FAERS Safety Report 19678386 (Version 2)
Quarter: 2021Q3

REPORT INFORMATION
  Report Type: Report from Study
  Country: GR (occurrence: GR)
  Receive Date: 20210809
  Receipt Date: 20210909
  Transmission Date: 20211014
  Serious: Yes (Other)
  Sender: FDA-Public Use
  Company Number: GR-MYLANLABS-2020M1093345

PATIENT
  Sex: Male

DRUGS (1)
  1. CLIFT (GLATIRAMER ACETATE) [Suspect]
     Active Substance: GLATIRAMER ACETATE
     Indication: MULTIPLE SCLEROSIS
     Dosage: 20 MILLIGRAM, QD
     Route: 058
     Dates: start: 20200708, end: 202107

REACTIONS (3)
  - Drug ineffective [Not Recovered/Not Resolved]
  - Injection site haemorrhage [Not Recovered/Not Resolved]
  - Injection site induration [Recovering/Resolving]
